FAERS Safety Report 5047609-2 (Version None)
Quarter: 2006Q3

REPORT INFORMATION
  Report Type: 
  Country: None (occurrence: None)
  Receive Date: 20060705
  Receipt Date: 20060628
  Transmission Date: 20061208
  Serious: Yes (Life-Threatening, Hospitalization)
  Sender: FDA-Public Use
  Company Number: 2006-02648

PATIENT
  Age: 65 Year
  Sex: Female
  Weight: 51.2 kg

DRUGS (1)
  1. FERRLECIT [Suspect]
     Indication: IRON DEFICIENCY ANAEMIA
     Dosage: 250 MG, 100CC/HR INC 200CC/HR, INTRAVENOUS
     Route: 042
     Dates: start: 20060626

REACTIONS (9)
  - ABDOMINAL PAIN [None]
  - ANAPHYLACTIC REACTION [None]
  - BURNING SENSATION [None]
  - CATHETER RELATED COMPLICATION [None]
  - DIARRHOEA [None]
  - HYPOTENSION [None]
  - PNEUMOTHORAX [None]
  - RETCHING [None]
  - VOMITING [None]
